FAERS Safety Report 6934397-5 (Version None)
Quarter: 2010Q3

REPORT INFORMATION
  Report Type: 
  Country: None (occurrence: None)
  Receive Date: 20100820
  Receipt Date: 20100813
  Transmission Date: 20110219
  Serious: Yes (Other)
  Sender: FDA-Public Use
  Company Number: A0876830A

PATIENT
  Sex: Female
  Weight: 14.5 kg

DRUGS (5)
  1. FLIXOTIDE [Suspect]
     Indication: ASTHMA
     Dosage: 1PUFF TWICE PER DAY
     Route: 065
     Dates: start: 20090401, end: 20100401
  2. NASONEX [Concomitant]
     Dosage: 1PUFF TWICE PER DAY
     Route: 045
     Dates: start: 20080301
  3. AEROLIN [Concomitant]
     Indication: ASTHMATIC CRISIS
     Dosage: 2PUFF FOUR TIMES PER DAY
     Dates: start: 20090501, end: 20100523
  4. PREDNISOLONE [Concomitant]
     Indication: ASTHMATIC CRISIS
     Dosage: 4ML PER DAY
     Dates: start: 20100101
  5. POLARAMINE [Concomitant]
     Indication: ASTHMATIC CRISIS
     Dosage: 2.5ML TWICE PER DAY

REACTIONS (2)
  - ASTHMATIC CRISIS [None]
  - DRUG INEFFECTIVE [None]
